FAERS Safety Report 9293250 (Version 3)
Quarter: 2014Q1

REPORT INFORMATION
  Report Type: Spontaneous
  Country: US (occurrence: US)
  Receive Date: 20130516
  Receipt Date: 20140224
  Transmission Date: 20141002
  Serious: No
  Sender: FDA-Public Use
  Company Number: US-009507513-1305USA009418

PATIENT
  Sex: Male

DRUGS (4)
  1. PROPECIA [Suspect]
     Indication: ALOPECIA
     Dosage: 1 MG, QD
     Route: 048
     Dates: start: 20060411, end: 20061002
  2. PROPECIA [Suspect]
     Dosage: 1 MG, QD
     Route: 048
     Dates: start: 20061229, end: 20120710
  3. PROPECIA [Suspect]
     Dosage: 1 MG, QD
     Route: 048
     Dates: start: 20101230, end: 20111219
  4. ATENOLOL [Concomitant]
     Indication: HYPERTENSION
     Dosage: UNK
     Dates: start: 20070425

REACTIONS (13)
  - Weight increased [Unknown]
  - Hypertension [Unknown]
  - Cardiac disorder [Unknown]
  - Pain [Unknown]
  - Infection [Unknown]
  - Coronary arterial stent insertion [Unknown]
  - Arthritis [Unknown]
  - Weight abnormal [Unknown]
  - Back pain [Unknown]
  - Pain in extremity [Unknown]
  - Libido decreased [Unknown]
  - Sexual dysfunction [Not Recovered/Not Resolved]
  - Erectile dysfunction [Not Recovered/Not Resolved]
